FAERS Safety Report 20865999 (Version 2)
Quarter: 2022Q2

REPORT INFORMATION
  Report Type: Spontaneous
  Country: GB (occurrence: GB)
  Receive Date: 20220524
  Receipt Date: 20220613
  Transmission Date: 20220720
  Serious: Yes (Other)
  Sender: FDA-Public Use
  Company Number: GB-MYLANLABS-2021M1043263

PATIENT
  Age: 53 Year
  Sex: Male

DRUGS (2)
  1. CLOZARIL [Suspect]
     Active Substance: CLOZAPINE
     Indication: Schizophrenia
     Dosage: UNK
     Route: 048
     Dates: start: 20080922
  2. CLOZARIL [Suspect]
     Active Substance: CLOZAPINE
     Dosage: 350 MILLIGRAM, QD
     Dates: start: 20220430

REACTIONS (4)
  - Thrombocytopenia [Not Recovered/Not Resolved]
  - Differential white blood cell count abnormal [Unknown]
  - White blood cell count decreased [Recovered/Resolved]
  - Haemoglobin decreased [Not Recovered/Not Resolved]

NARRATIVE: CASE EVENT DATE: 20210714
